FAERS Safety Report 18760521 (Version 1)
Quarter: 2021Q1

REPORT INFORMATION
  Report Type: Spontaneous
  Country: US (occurrence: US)
  Receive Date: 20210119
  Receipt Date: 20210119
  Transmission Date: 20210419
  Serious: No
  Sender: FDA-Public Use
  Company Number: US-ROCHE-2480321

PATIENT
  Sex: Male

DRUGS (1)
  1. RITUXAN [Suspect]
     Active Substance: RITUXIMAB
     Indication: PRODUCT USED FOR UNKNOWN INDICATION
     Route: 042
     Dates: start: 201702, end: 201902

REACTIONS (4)
  - Lip pruritus [Unknown]
  - Headache [Unknown]
  - Dry mouth [Unknown]
  - Dysgeusia [Not Recovered/Not Resolved]
